FAERS Safety Report 21008946 (Version 1)
Quarter: 2022Q2

REPORT INFORMATION
  Report Type: Spontaneous
  Country: US (occurrence: None)
  Receive Date: 20220627
  Receipt Date: 20220627
  Transmission Date: 20220721
  Serious: No
  Sender: FDA-Public Use
  Company Number: None

PATIENT
  Age: 60 Year
  Sex: Male
  Weight: 112.5 kg

DRUGS (7)
  1. LOSARTAN POTASSIUM [Suspect]
     Active Substance: LOSARTAN POTASSIUM
     Indication: Hypertension
     Dosage: OTHER QUANTITY : 1 TABLET(S);?FREQUENCY : DAILY;?
     Route: 048
     Dates: start: 20220101, end: 20220614
  2. AZELASTINE [Concomitant]
  3. COENZYME Q10 [Concomitant]
     Active Substance: DIETARY SUPPLEMENT\UBIDECARENONE
  4. OMEGA 3 FISH OIL [Concomitant]
  5. ALLEGRA [Concomitant]
  6. MENS DAILY MULTI-VITAMIN [Concomitant]
  7. B-COMPLEX VITAMIN [Concomitant]

REACTIONS (2)
  - Abdominal pain upper [None]
  - Hepatic pain [None]

NARRATIVE: CASE EVENT DATE: 20220301
